FAERS Safety Report 7864182-1 (Version None)
Quarter: 2011Q4

REPORT INFORMATION
  Report Type: 
  Country: None (occurrence: None)
  Receive Date: 20111028
  Receipt Date: 20111025
  Transmission Date: 20120403
  Serious: Yes (Other)
  Sender: FDA-Public Use
  Company Number: FR-PFIZER INC-2011200361

PATIENT
  Age: 66 Year
  Sex: Male

DRUGS (2)
  1. ATORVASTATIN CALCIUM [Suspect]
     Dosage: 40 MG, DAILY
     Dates: end: 20100701
  2. ATORVASTATIN CALCIUM [Suspect]
     Dosage: 40 MG + 20 MG EVERY OTHER DAY
     Dates: start: 20100701, end: 20110318

REACTIONS (1)
  - POLYMYALGIA RHEUMATICA [None]
